FAERS Safety Report 9070541 (Version 1)
Quarter: 2013Q1

REPORT INFORMATION
  Report Type: Report from Study
  Country: US (occurrence: US)
  Receive Date: 20130129
  Receipt Date: 20130129
  Transmission Date: 20140127
  Serious: No
  Sender: FDA-Public Use
  Company Number: US-ABBOTT-12P-163-0921447-00

PATIENT
  Sex: Female
  Weight: 51.2 kg

DRUGS (5)
  1. HUMIRA 40 MG/ 0.8 ML PRE-FILLED SYRINGE [Suspect]
     Indication: CROHN^S DISEASE
     Route: 058
     Dates: start: 201003, end: 201103
  2. HUMIRA 40 MG/ 0.8 ML PRE-FILLED SYRINGE [Suspect]
     Route: 058
     Dates: start: 201103
  3. CYCLESSA [Concomitant]
     Indication: ORAL CONTRACEPTION
  4. LASALAMINE [Concomitant]
     Indication: CROHN^S DISEASE
  5. CLONAZAPAM [Concomitant]
     Indication: ANXIETY

REACTIONS (2)
  - Genital lesion [Not Recovered/Not Resolved]
  - Skin lesion [Not Recovered/Not Resolved]
